FAERS Safety Report 12186437 (Version 1)
Quarter: 2016Q1

REPORT INFORMATION
  Report Type: Spontaneous
  Country: GB (occurrence: GB)
  Receive Date: 20160317
  Receipt Date: 20160317
  Transmission Date: 20160526
  Serious: Yes (Hospitalization, Other)
  Sender: FDA-Public Use
  Company Number: GB-ASTRAZENECA-2016SE26995

PATIENT
  Age: 29 Year
  Sex: Male
  Weight: 65 kg

DRUGS (2)
  1. OMEPRAZOLE. [Suspect]
     Active Substance: OMEPRAZOLE
     Indication: GASTROOESOPHAGEAL REFLUX DISEASE
     Dosage: 20 MG TWO TIMES A DAY, 30 MINUTES BEFORE FOOD
     Route: 048
     Dates: start: 20160219, end: 20160226
  2. FLOTAC [Concomitant]
     Active Substance: DICLOFENAC SODIUM

REACTIONS (4)
  - Salivary hypersecretion [Unknown]
  - Abdominal pain upper [Recovering/Resolving]
  - Abdominal distension [Unknown]
  - Appendicitis [Unknown]

NARRATIVE: CASE EVENT DATE: 20160226
